FAERS Safety Report 8557666-4 (Version None)
Quarter: 2012Q3

REPORT INFORMATION
  Report Type: 
  Country: None (occurrence: None)
  Receive Date: 20120801
  Receipt Date: 20120718
  Transmission Date: 20120928
  Serious: Yes (Other)
  Sender: FDA-Public Use
  Company Number: US-ELI_LILLY_AND_COMPANY-US201207005932

PATIENT
  Age: 68 Year
  Sex: Male

DRUGS (4)
  1. LITHIUM CARBONATE [Concomitant]
  2. OLANZAPINE [Suspect]
     Indication: SCHIZOPHRENIA
     Dosage: 2.5 MG, BID
  3. ZYPREXA [Suspect]
     Indication: SCHIZOPHRENIA
     Dosage: 2.5 MG, BID
  4. MELLARIL [Concomitant]

REACTIONS (5)
  - WEIGHT INCREASED [None]
  - VISUAL IMPAIRMENT [None]
  - CATARACT [None]
  - LOSS OF LIBIDO [None]
  - SOMNOLENCE [None]
